FAERS Safety Report 7292744-1 (Version None)
Quarter: 2011Q1

REPORT INFORMATION
  Report Type: 
  Country: None (occurrence: None)
  Receive Date: 20110215
  Receipt Date: 20110131
  Transmission Date: 20110831
  Serious: Yes (Death, Life-Threatening, Hospitalization)
  Sender: FDA-Public Use
  Company Number: ES-BAYER-2011-008323

PATIENT
  Sex: Male

DRUGS (17)
  1. CERTICAN [Concomitant]
     Dosage: DAILY DOSE 1.5 MG
     Dates: start: 20100625
  2. DEZACOR [Concomitant]
     Dosage: DAILY DOSE 9 MG
  3. OMEPRAZOLE [Concomitant]
     Dosage: DAILY DOSE 20 MG
     Dates: start: 20100728
  4. CELLCEPT [Concomitant]
     Dosage: DAILY DOSE 2000 MG
     Dates: start: 20091117
  5. DEZACOR [Concomitant]
     Dosage: DAILY DOSE 12 MG
     Dates: start: 20091117, end: 20100727
  6. FLUCONAZOLE [Concomitant]
     Dosage: DAILY DOSE 200 MG
     Dates: start: 20100624
  7. LANTUS [Concomitant]
     Dosage: DAILY DOSE 16 U
  8. PROGRAF [Concomitant]
     Dosage: DAILY DOSE 2 MG
     Dates: start: 20091117
  9. NEXAVAR [Suspect]
     Indication: HEPATIC NEOPLASM MALIGNANT
     Dosage: 800 MG, QD
     Route: 048
     Dates: start: 20100629, end: 20100709
  10. CLEXANE [Concomitant]
     Dosage: DAILY DOSE 60 MG
     Dates: start: 20100624
  11. IBUPROFENO [Concomitant]
     Dosage: DAILY DOSE 1800 MG
     Dates: start: 20100728
  12. TRANKIMAZIN [Concomitant]
     Dosage: DAILY DOSE .5 MG
     Dates: start: 20100728
  13. CELLCEPT [Concomitant]
     Dosage: DAILY DOSE 1000 MG
  14. APIDRA [Concomitant]
     Dosage: UNK UNK, PRN
     Dates: start: 20091117
  15. LANTUS [Concomitant]
     Dosage: DAILY DOSE 18 U
  16. PANTOPRAZOLE [Concomitant]
     Dosage: DAILY DOSE 40 MG
     Dates: start: 20091117, end: 20100727
  17. LANTUS [Concomitant]
     Dosage: DAILY DOSE 34 U
     Dates: start: 20100105

REACTIONS (3)
  - HEPATIC NEOPLASM MALIGNANT [None]
  - CONVULSION [None]
  - CEREBRAL HAEMORRHAGE [None]
